FAERS Safety Report 4322325-0 (Version None)
Quarter: 2004Q1

REPORT INFORMATION
  Report Type: 
  Country: None (occurrence: None)
  Receive Date: 20040319
  Receipt Date: 20040317
  Transmission Date: 20041129
  Serious: Yes (Death)
  Sender: FDA-Public Use
  Company Number: HQWYE747618DEC03

PATIENT
  Age: 59 Year
  Sex: Female

DRUGS (7)
  1. GEMTUZUMAB OZOGAMICIN (GEMTUZUMAB OZOGAMICIN, INJECTION) [Suspect]
  2. BUSULFAN [Suspect]
  3. CYCLOPHOSPHAMIDE [Suspect]
  4. DAUNORUBICIN HCL [Concomitant]
  5. CYTARABINE [Concomitant]
  6. GM-CSF (GRANULOCYTE MACROPHAGE COLONY STIM FACTOR) [Concomitant]
  7. G-CSF (GRANULOCYTE COLONY STIMULATING FACTOR) [Concomitant]

REACTIONS (6)
  - ANAEMIA [None]
  - BACTERIAL INFECTION [None]
  - GANGRENE [None]
  - INTRAVASCULAR HAEMOLYSIS [None]
  - NECROSIS [None]
  - RENAL FAILURE [None]
